FAERS Safety Report 21100462 (Version 4)
Quarter: 2022Q4

REPORT INFORMATION
  Report Type: Report from Study
  Country: US (occurrence: US)
  Receive Date: 20220719
  Receipt Date: 20221027
  Transmission Date: 20230113
  Serious: Yes (Hospitalization, Other)
  Sender: FDA-Public Use
  Company Number: US-G1-000367

PATIENT
  Age: 38 Year
  Sex: Female
  Weight: 64.2 kg

DRUGS (17)
  1. TRILACICLIB [Suspect]
     Active Substance: TRILACICLIB
     Indication: Myelosuppression
     Dosage: 240 MG/M2 (391  MG) ON DAY 1 AND 8 OF EACH 21-DAY CYCLE
     Route: 041
     Dates: start: 20210819, end: 20211007
  2. TRILACICLIB [Suspect]
     Active Substance: TRILACICLIB
     Dosage: 240 MG/M2 (391 MG) ON DAY 1 AND 8 OF EACH 21-DAY CYCLE
     Route: 041
     Dates: start: 20211104
  3. CARBOPLATIN [Suspect]
     Active Substance: CARBOPLATIN
     Indication: Triple negative breast cancer
     Dosage: AUC2  (220 MG) ON DAYS 1 AND 8 OF EACH 21 DAY CYCLE
     Route: 041
     Dates: start: 20210819, end: 20210819
  4. CARBOPLATIN [Suspect]
     Active Substance: CARBOPLATIN
     Dosage: AUC2 (240 MG) ON DAYS 1 AND 8 OF EACH 21 DAY CYCLE
     Route: 041
     Dates: start: 20210825, end: 20210825
  5. CARBOPLATIN [Suspect]
     Active Substance: CARBOPLATIN
     Dosage: AUC2 (220 MG) ON DAYS 1 AND 8 OF EACH 21 DAY CYCLE
     Route: 041
     Dates: start: 20210909, end: 20211007
  6. CARBOPLATIN [Suspect]
     Active Substance: CARBOPLATIN
     Dosage: 170 MG: AUC 20% DOSE REDUCTION DAYS 1 AND 8 OF EACH 21 DAY CYCLE
     Route: 041
     Dates: start: 20211104
  7. GEMCITABINE [Suspect]
     Active Substance: GEMCITABINE
     Indication: Triple negative breast cancer
     Dosage: 1630 MG: 1000 MG/M2 ON DAY 1 AND 8 OF EACH 21-DAY CYCLE
     Route: 041
     Dates: start: 20210819, end: 20211007
  8. GEMCITABINE [Suspect]
     Active Substance: GEMCITABINE
     Dosage: 1300 MG: 800 MG/M2 (1300 MG) ON DAY 1 AND 8 OF EACH CYCLE
     Route: 041
     Dates: start: 20211104
  9. GABAPENTIN [Concomitant]
     Active Substance: GABAPENTIN
     Indication: Hot flush
     Dosage: FREQUENCY: NIGHTLY
     Route: 048
     Dates: start: 20180125
  10. MORPHINE [Concomitant]
     Active Substance: MORPHINE
     Indication: Headache
     Dosage: 100 MILLIGRAM, PRN
     Route: 048
     Dates: start: 20210726
  11. MORPHINE [Concomitant]
     Active Substance: MORPHINE
     Indication: Pain
     Dosage: 15 MILLIGRAM, PRN
     Route: 048
  12. PALONOSETRON [Concomitant]
     Active Substance: PALONOSETRON
     Indication: Prophylaxis of nausea and vomiting
     Dosage: 0.25 MILLIGRAM, PRN
     Route: 042
     Dates: start: 20210819
  13. DEXAMETHASONE [Concomitant]
     Active Substance: DEXAMETHASONE
     Indication: Allergy prophylaxis
     Dosage: FREQUENCY: WITH TREATMENT
     Route: 042
     Dates: start: 20210819
  14. LIDOCAINE\PRILOCAINE HYDROCHLORIDE [Concomitant]
     Active Substance: LIDOCAINE\PRILOCAINE HYDROCHLORIDE
     Indication: Catheter management
     Dosage: FREQUENCY: WITH TREATMENT
     Route: 061
  15. ACETAMINOPHEN [Concomitant]
     Active Substance: ACETAMINOPHEN
     Indication: Pain
     Dosage: 325-500 MG, PRN
     Route: 048
     Dates: start: 20210909
  16. ACETAMINOPHEN [Concomitant]
     Active Substance: ACETAMINOPHEN
     Indication: Headache
  17. SULFAMETHOXAZOLE\TRIMETHOPRIM [Concomitant]
     Active Substance: SULFAMETHOXAZOLE\TRIMETHOPRIM
     Indication: Urinary tract infection
     Dosage: 1 TABLET DAILY (.5 DAYS)
     Route: 048
     Dates: start: 20211010, end: 20211017

REACTIONS (1)
  - Sepsis [Recovered/Resolved]

NARRATIVE: CASE EVENT DATE: 20211016
